FAERS Safety Report 9188581 (Version 2)
Quarter: 2013Q2

REPORT INFORMATION
  Report Type: Spontaneous
  Country: IE (occurrence: IE)
  Receive Date: 20130325
  Receipt Date: 20130501
  Transmission Date: 20140414
  Serious: Yes (Hospitalization)
  Sender: FDA-Public Use
  Company Number: IE-ROCHE-1205634

PATIENT
  Age: 51 Year
  Sex: Male
  Weight: 90.9 kg

DRUGS (5)
  1. PEGASYS [Suspect]
     Indication: HEPATITIS C
     Route: 058
     Dates: start: 20120911, end: 20130219
  2. CIPRAMIL [Suspect]
     Indication: DEPRESSION
     Route: 048
     Dates: start: 20121106
  3. COPEGUS [Suspect]
     Indication: HEPATITIS C
     Route: 048
     Dates: start: 20120828
  4. NEUPOGEN [Concomitant]
     Indication: NEUTROPENIA
     Route: 058
     Dates: start: 20130109
  5. ZIMOVANE [Concomitant]
     Indication: SLEEP DISORDER
     Route: 048
     Dates: start: 20130108

REACTIONS (2)
  - Road traffic accident [Not Recovered/Not Resolved]
  - Overdose [Unknown]
